FAERS Safety Report 16326751 (Version 1)
Quarter: 2019Q2

REPORT INFORMATION
  Report Type: Spontaneous
  Country: AU (occurrence: AU)
  Receive Date: 20190517
  Receipt Date: 20190517
  Transmission Date: 20190711
  Serious: Yes (Hospitalization)
  Sender: FDA-Public Use
  Company Number: AU-CELGENEUS-AUS-20190300429

PATIENT
  Age: 61 Year
  Sex: Male
  Weight: 55 kg

DRUGS (13)
  1. NOVORAPID [Concomitant]
     Active Substance: INSULIN ASPART
     Indication: HYPERGLYCAEMIA
     Route: 065
     Dates: start: 20190208, end: 20190208
  2. NOVORAPID [Concomitant]
     Active Substance: INSULIN ASPART
     Dosage: 6 IU (INTERNATIONAL UNIT)
     Route: 065
     Dates: start: 20190209, end: 20190209
  3. ABRAXANE [Suspect]
     Active Substance: PACLITAXEL
     Indication: PANCREATIC CARCINOMA
     Route: 041
     Dates: start: 20180625, end: 20180709
  4. GEMCITABINE [Concomitant]
     Active Substance: GEMCITABINE\GEMCITABINE HYDROCHLORIDE
     Dosage: DAY 1
     Route: 065
     Dates: start: 20181002, end: 20181002
  5. GEMCITABINE [Concomitant]
     Active Substance: GEMCITABINE\GEMCITABINE HYDROCHLORIDE
     Dosage: DAY 15
     Route: 065
     Dates: start: 20181016, end: 20181016
  6. GEMCITABINE [Concomitant]
     Active Substance: GEMCITABINE\GEMCITABINE HYDROCHLORIDE
     Indication: PANCREATIC CARCINOMA
     Route: 065
     Dates: start: 20180625, end: 20180709
  7. ABRAXANE [Suspect]
     Active Substance: PACLITAXEL
     Route: 041
     Dates: start: 20181002, end: 20181016
  8. GEMCITABINE [Concomitant]
     Active Substance: GEMCITABINE\GEMCITABINE HYDROCHLORIDE
     Route: 065
     Dates: start: 20180904, end: 20180918
  9. GEMCITABINE [Concomitant]
     Active Substance: GEMCITABINE\GEMCITABINE HYDROCHLORIDE
     Dosage: DAY 8
     Route: 065
     Dates: start: 20181009, end: 20181009
  10. NOVORAPID [Concomitant]
     Active Substance: INSULIN ASPART
     Route: 065
  11. GLICLAZIDE [Concomitant]
     Active Substance: GLICLAZIDE
     Indication: HYPERGLYCAEMIA
     Route: 065
  12. GEMCITABINE [Concomitant]
     Active Substance: GEMCITABINE\GEMCITABINE HYDROCHLORIDE
     Route: 065
     Dates: start: 20180731, end: 20180814
  13. METFORMIN [Concomitant]
     Active Substance: METFORMIN HYDROCHLORIDE
     Indication: HYPERGLYCAEMIA
     Dosage: 2 GRAM
     Route: 065

REACTIONS (2)
  - Post procedural complication [Recovered/Resolved]
  - Klebsiella sepsis [Recovered/Resolved]

NARRATIVE: CASE EVENT DATE: 20181226
